FAERS Safety Report 24393012 (Version 1)
Quarter: 2024Q4

REPORT INFORMATION
  Report Type: Spontaneous
  Country: US (occurrence: US)
  Receive Date: 20241003
  Receipt Date: 20241003
  Transmission Date: 20250114
  Serious: No
  Sender: FRESENIUS KABI
  Company Number: US-FreseniusKabi-FK202414476

PATIENT

DRUGS (1)
  1. SENSORCAINE MPF [Suspect]
     Active Substance: BUPIVACAINE HYDROCHLORIDE
     Indication: Analgesic therapy
     Dosage: FORM OF ADMINISTRATION: INJECTION?ROUTE OF ADMINISITRATION: SPINAL

REACTIONS (2)
  - Off label use [Unknown]
  - Therapeutic product effect delayed [Unknown]
